FAERS Safety Report 6161541-2 (Version None)
Quarter: 2009Q2

REPORT INFORMATION
  Report Type: 
  Country: None (occurrence: None)
  Receive Date: 20090421
  Receipt Date: 20090410
  Transmission Date: 20091009
  Serious: Yes (Hospitalization, Other)
  Sender: FDA-Public Use
  Company Number: US-ELI_LILLY_AND_COMPANY-US200903001627

PATIENT
  Sex: Female
  Weight: 92.517 kg

DRUGS (6)
  1. EVISTA [Suspect]
     Indication: OSTEOPENIA
     Dosage: 60 MG, DAILY (1/D)
     Route: 065
     Dates: start: 20000101, end: 20090101
  2. AVAPRO [Concomitant]
     Dosage: UNK, UNKNOWN
     Route: 065
  3. FOSAMAX [Concomitant]
     Dosage: UNK, UNKNOWN
     Route: 065
  4. ASPIRIN [Concomitant]
     Dosage: UNK, UNKNOWN
     Route: 065
  5. CENTRUM [Concomitant]
     Dosage: UNK, UNKNOWN
     Route: 065
  6. TYLENOL (CAPLET) [Concomitant]
     Dosage: UNK, UNKNOWN
     Route: 065

REACTIONS (1)
  - BREAST CANCER STAGE III [None]
